FAERS Safety Report 13495721 (Version 1)
Quarter: 2017Q2

REPORT INFORMATION
  Report Type: Report from Study
  Country: JP (occurrence: JP)
  Receive Date: 20170428
  Receipt Date: 20170428
  Transmission Date: 20170830
  Serious: Yes (Death)
  Sender: FDA-Public Use
  Company Number: JP-PFIZER INC-2017178950

PATIENT

DRUGS (2)
  1. FLUOROURACIL. [Suspect]
     Active Substance: FLUOROURACIL
     Indication: COLON CANCER
     Dosage: 500 MG/M2, CYCLIC (ON DAYS 1, 8, 15, 22, 29, AND 36)
     Route: 040
  2. CALCIUM FOLINATE [Suspect]
     Active Substance: LEUCOVORIN CALCIUM
     Indication: COLON CANCER
     Dosage: 250 MG/M2, CYCLIC (BY 2 H DRIP ON DAYS 1, 8, 15, 22, 29, AND 36)
     Route: 041

REACTIONS (4)
  - Gastrointestinal haemorrhage [Fatal]
  - Febrile neutropenia [Fatal]
  - Pneumonia [Fatal]
  - Diarrhoea [Fatal]
